FAERS Safety Report 8431607-2 (Version None)
Quarter: 2012Q2

REPORT INFORMATION
  Report Type: 
  Country: None (occurrence: None)
  Receive Date: 20120613
  Receipt Date: 20120605
  Transmission Date: 20120825
  Serious: Yes (Other)
  Sender: FDA-Public Use
  Company Number: US-US-EMD SERONO, INC.-7138577

PATIENT
  Sex: Female
  Weight: 81 kg

DRUGS (5)
  1. REBIF [Suspect]
     Indication: MULTIPLE SCLEROSIS
     Route: 058
  2. PROVIGIL [Concomitant]
     Indication: ASTHENIA
  3. WELLBUTRIN [Concomitant]
     Indication: PRODUCT USED FOR UNKNOWN INDICATION
  4. REBIF [Suspect]
     Route: 058
     Dates: start: 20110808
  5. RITALIN [Concomitant]
     Indication: ASTHENIA

REACTIONS (3)
  - MULTIPLE SCLEROSIS RELAPSE [None]
  - INTERVERTEBRAL DISC PROTRUSION [None]
  - INFLUENZA LIKE ILLNESS [None]
